FAERS Safety Report 15776769 (Version 3)
Quarter: 2019Q2

REPORT INFORMATION
  Report Type: Spontaneous
  Country: US (occurrence: US)
  Receive Date: 20181231
  Receipt Date: 20190417
  Transmission Date: 20190711
  Serious: No
  Sender: FDA-Public Use
  Company Number: US-PFIZER INC-2018528091

PATIENT
  Age: 11 Year
  Sex: Female
  Weight: 34.47 kg

DRUGS (2)
  1. EUCRISA [Suspect]
     Active Substance: CRISABOROLE
     Indication: ECZEMA
     Dosage: 2.5 G, UNK
     Dates: start: 20181212, end: 20181214
  2. EUCERIN [Suspect]
     Active Substance: ENSULIZOLE\EUCERIN\OCTINOXATE\OCTISALATE\TITANIUM DIOXIDE\ZINC OXIDE
     Indication: ECZEMA
     Dosage: UNK

REACTIONS (5)
  - Application site dryness [Unknown]
  - Application site burn [Unknown]
  - Application site vesicles [Unknown]
  - Application site discolouration [Unknown]
  - Application site pain [Unknown]
